FAERS Safety Report 10797719 (Version 2)
Quarter: 2015Q1

REPORT INFORMATION
  Report Type: Spontaneous
  Country: US (occurrence: US)
  Receive Date: 20150216
  Receipt Date: 20150316
  Transmission Date: 20150721
  Serious: No
  Sender: FDA-Public Use
  Company Number: US-PFIZER INC-2015050279

PATIENT
  Age: 42 Year
  Sex: Female

DRUGS (1)
  1. CABERGOLINE. [Suspect]
     Active Substance: CABERGOLINE
     Dosage: UNK

REACTIONS (4)
  - Oedema peripheral [Unknown]
  - Condition aggravated [Unknown]
  - Headache [Recovering/Resolving]
  - Condition aggravated [Recovering/Resolving]
